FAERS Safety Report 4815119-0 (Version None)
Quarter: 2005Q4

REPORT INFORMATION
  Report Type: 
  Country: None (occurrence: None)
  Receive Date: 20051028
  Receipt Date: 20051021
  Transmission Date: 20060501
  Serious: Yes (Death, Hospitalization, Other)
  Sender: FDA-Public Use
  Company Number: ES-AVENTIS-200519369GDDC

PATIENT
  Age: 81 Year
  Sex: Female

DRUGS (3)
  1. LANTUS [Suspect]
     Dates: end: 20050414
  2. AUTOPEN INSULIN INJECTION PEN [Suspect]
  3. NOVORAPID [Suspect]
     Dates: end: 20050414

REACTIONS (2)
  - DEATH [None]
  - DIABETIC COMA [None]
